APPROVED DRUG PRODUCT: LUMAKRAS
Active Ingredient: SOTORASIB
Strength: 240MG
Dosage Form/Route: TABLET;ORAL
Application: N214665 | Product #003
Applicant: AMGEN INC
Approved: Jun 26, 2024 | RLD: Yes | RS: No | Type: RX

PATENTS:
Patent 12398133 | Expires: May 20, 2040
Patent 12398133 | Expires: May 20, 2040
Patent 12280056 | Expires: Nov 18, 2039
Patent 11426404 | Expires: Sep 15, 2040
Patent 11236091 | Expires: May 20, 2040
Patent 11827635 | Expires: May 20, 2040
Patent 11827635 | Expires: May 20, 2040
Patent 11426404 | Expires: Sep 15, 2040
Patent 11236091 | Expires: May 20, 2040
Patent 10519146 | Expires: May 21, 2038

EXCLUSIVITY:
Code: I-962 | Date: Jan 16, 2028
Code: NCE | Date: May 28, 2026
Code: ODE* | Date: May 28, 2028
Code: ODE-507 | Date: Jan 16, 2032